FAERS Safety Report 13291483 (Version 1)
Quarter: 2017Q1

REPORT INFORMATION
  Report Type: Spontaneous
  Country: US (occurrence: US)
  Receive Date: 20170302
  Receipt Date: 20170302
  Transmission Date: 20170428
  Serious: Yes (Other)
  Sender: FDA-Public Use
  Company Number: US-BAYER-2017-040401

PATIENT
  Sex: Female

DRUGS (1)
  1. MIRENA [Suspect]
     Active Substance: LEVONORGESTREL
     Indication: CONTRACEPTION
     Dosage: 20 MCG/24HR, CONT
     Route: 015
     Dates: start: 2014

REACTIONS (6)
  - Adverse drug reaction [None]
  - Drug ineffective [None]
  - Menorrhagia [None]
  - Pregnancy with contraceptive device [None]
  - Headache [None]
  - Patient dissatisfaction with treatment [None]

NARRATIVE: CASE EVENT DATE: 2014
